FAERS Safety Report 13621688 (Version 1)
Quarter: 2017Q2

REPORT INFORMATION
  Report Type: Spontaneous
  Country: US (occurrence: US)
  Receive Date: 20170607
  Receipt Date: 20170607
  Transmission Date: 20170830
  Serious: No
  Sender: FDA-Public Use
  Company Number: US-ROCHE-1755022

PATIENT
  Age: 57 Year
  Sex: Male

DRUGS (2)
  1. KLONOPIN [Suspect]
     Active Substance: CLONAZEPAM
     Indication: BRAIN INJURY
     Route: 065
  2. KLONOPIN [Suspect]
     Active Substance: CLONAZEPAM
     Indication: ANXIETY
     Route: 065

REACTIONS (5)
  - Insomnia [Recovered/Resolved]
  - Concussion [Unknown]
  - Blood pressure increased [Unknown]
  - Cardiac stress test abnormal [Unknown]
  - Pain [Not Recovered/Not Resolved]
